FAERS Safety Report 6305559-5 (Version None)
Quarter: 2009Q3

REPORT INFORMATION
  Report Type: 
  Country: None (occurrence: None)
  Receive Date: 20090811
  Receipt Date: 20090804
  Transmission Date: 20100115
  Serious: Yes (Other)
  Sender: FDA-Public Use
  Company Number: US-MERCK-0908USA00608

PATIENT
  Age: 35 Year
  Sex: Female

DRUGS (4)
  1. IVEMEND [Suspect]
     Indication: PROPHYLAXIS OF NAUSEA AND VOMITING
     Route: 065
     Dates: start: 20090723, end: 20090723
  2. ALOXI [Concomitant]
     Route: 065
  3. DECADRON [Concomitant]
     Route: 065
  4. BENADRYL [Concomitant]
     Route: 065

REACTIONS (2)
  - CHILLS [None]
  - STRIDOR [None]
